FAERS Safety Report 10261936 (Version 1)
Quarter: 2014Q2

REPORT INFORMATION
  Report Type: Spontaneous
  Country: CN (occurrence: CN)
  Receive Date: 20140626
  Receipt Date: 20140626
  Transmission Date: 20141212
  Serious: Yes (Hospitalization)
  Sender: FDA-Public Use
  Company Number: CN-BRISTOL-MYERS SQUIBB COMPANY-21075817

PATIENT
  Age: 47 Year
  Sex: Male

DRUGS (2)
  1. BARACLUDE TABS 0.5 MG [Suspect]
     Route: 048
     Dates: start: 20130124
  2. ADEFOVIR [Suspect]
     Dosage: FORMULATION:CAPS 1 MG
     Route: 048
     Dates: start: 20130124

REACTIONS (2)
  - Blood creatine phosphokinase increased [Recovering/Resolving]
  - Myoglobin blood increased [Recovering/Resolving]
